FAERS Safety Report 7583344-4 (Version None)
Quarter: 2011Q2

REPORT INFORMATION
  Report Type: 
  Country: None (occurrence: None)
  Receive Date: 20110630
  Receipt Date: 20110620
  Transmission Date: 20111010
  Serious: Yes (Hospitalization, Other)
  Sender: FDA-Public Use
  Company Number: US-ELI_LILLY_AND_COMPANY-US201006004630

PATIENT
  Sex: Female

DRUGS (14)
  1. ZANTAC [Concomitant]
     Dosage: 150 DF, UNKNOWN
  2. TRIAMTERENE AND HYDROCHLOROTHIAZIDE [Concomitant]
     Dosage: 1 DF, UNK
  3. CRESTOR [Concomitant]
     Dosage: 20 MG, UNKNOWN
  4. CENTRUM SILVER [Concomitant]
     Dosage: 1 DF, UNK
  5. VITAMIN D [Concomitant]
     Dosage: 1000 IU, UNKNOWN
  6. FORTEO [Suspect]
     Indication: OSTEOPOROSIS
     Dosage: 20 UG, DAILY (1/D)
     Dates: start: 20090820
  7. FORTEO [Suspect]
     Dosage: 20 UG, DAILY (1/D)
     Dates: end: 20110327
  8. CALTRATE D                         /00944201/ [Concomitant]
  9. CLONIDINE [Concomitant]
     Dosage: 1 MG, EVERY 8 HRS
  10. PLAVIX [Concomitant]
     Dosage: 75 MG, UNK
     Dates: start: 20091201
  11. LOSARTAN POTASSIUM [Concomitant]
     Dosage: 100 MG, UNKNOWN
  12. FORTEO [Suspect]
     Dosage: 20 UG, DAILY (1/D)
  13. OSTEO BI-FLEX [Concomitant]
     Dosage: 2 DF, UNKNOWN
  14. BYSTOLIC [Concomitant]
     Dosage: 5 MG, UNKNOWN

REACTIONS (9)
  - MUSCULOSKELETAL PAIN [None]
  - INJECTION SITE HAEMATOMA [None]
  - BLOOD PRESSURE ABNORMAL [None]
  - ARTHRALGIA [None]
  - ARTHRITIS [None]
  - HYPERTENSION [None]
  - SWELLING [None]
  - CONTUSION [None]
  - SURGERY [None]
